FAERS Safety Report 16886163 (Version 1)
Quarter: 2019Q4

REPORT INFORMATION
  Report Type: Spontaneous
  Country: US (occurrence: US)
  Receive Date: 20191004
  Receipt Date: 20191004
  Transmission Date: 20200122
  Serious: Yes (Other)
  Sender: FDA-Public Use
  Company Number: None

PATIENT
  Age: 65 Year
  Sex: Female
  Weight: 72 kg

DRUGS (5)
  1. BIO-IDENDTICAL HORMONE REPLACEMENTS [Concomitant]
  2. PAIN MEDICATION [Concomitant]
     Active Substance: UNSPECIFIED INGREDIENT
  3. ESCITALOPRAM [Suspect]
     Active Substance: ESCITALOPRAM OXALATE
     Indication: MOOD SWINGS
     Dosage: ??          QUANTITY:1 TABLET(S);?
     Route: 048
  4. CBD 35MG [Concomitant]
  5. ESCITALOPRAM [Suspect]
     Active Substance: ESCITALOPRAM OXALATE
     Indication: PAIN
     Dosage: ??          QUANTITY:1 TABLET(S);?
     Route: 048

REACTIONS (8)
  - Tremor [None]
  - Suspected product quality issue [None]
  - Product substitution issue [None]
  - Treatment failure [None]
  - Hyperhidrosis [None]
  - Agitation [None]
  - Impatience [None]
  - Nervousness [None]

NARRATIVE: CASE EVENT DATE: 20190923
